FAERS Safety Report 7448447-3 (Version None)
Quarter: 2011Q2

REPORT INFORMATION
  Report Type: 
  Country: None (occurrence: None)
  Receive Date: 20110429
  Receipt Date: 20100618
  Transmission Date: 20111010
  Serious: No
  Sender: FDA-Public Use
  Company Number: US-ASTRAZENECA-2010SE28631

PATIENT
  Sex: Female

DRUGS (3)
  1. BELLADONNA [Suspect]
     Indication: DIARRHOEA
  2. NEXIUM [Suspect]
     Indication: HELICOBACTER INFECTION
     Route: 048
     Dates: start: 20100528, end: 20100611
  3. NEXIUM [Suspect]
     Route: 048
     Dates: start: 20100615

REACTIONS (5)
  - ABDOMINAL DISTENSION [None]
  - ABDOMINAL PAIN UPPER [None]
  - DRUG INEFFECTIVE [None]
  - DIARRHOEA [None]
  - DRUG DOSE OMISSION [None]
